FAERS Safety Report 20212588 (Version 4)
Quarter: 2022Q2

REPORT INFORMATION
  Report Type: Report from Study
  Country: US (occurrence: US)
  Receive Date: 20211221
  Receipt Date: 20220401
  Transmission Date: 20220720
  Serious: Yes (Hospitalization, Other)
  Sender: FDA-Public Use
  Company Number: US-ELI_LILLY_AND_COMPANY-US202112008484

PATIENT
  Age: 60 Year
  Sex: Female

DRUGS (3)
  1. VERZENIO [Suspect]
     Active Substance: ABEMACICLIB
     Indication: Breast cancer metastatic
     Dosage: 150 MG, BID
     Route: 048
     Dates: start: 20211202
  2. LETROZOLE [Concomitant]
     Active Substance: LETROZOLE
     Indication: Breast cancer metastatic
  3. HYDROXYCHLOROQUINE [Concomitant]
     Active Substance: HYDROXYCHLOROQUINE
     Indication: Systemic lupus erythematosus

REACTIONS (14)
  - Abdominal discomfort [Not Recovered/Not Resolved]
  - Pyrexia [Recovered/Resolved]
  - Abdominal pain upper [Not Recovered/Not Resolved]
  - Feeling abnormal [Not Recovered/Not Resolved]
  - Weight decreased [Not Recovered/Not Resolved]
  - Diarrhoea [Not Recovered/Not Resolved]
  - Stomatitis [Not Recovered/Not Resolved]
  - Decreased appetite [Not Recovered/Not Resolved]
  - Fatigue [Not Recovered/Not Resolved]
  - Asthenia [Not Recovered/Not Resolved]
  - Rash [Not Recovered/Not Resolved]
  - Malignant neoplasm progression [Unknown]
  - Rash pruritic [Not Recovered/Not Resolved]
  - Drug ineffective [Unknown]

NARRATIVE: CASE EVENT DATE: 20211214
